FAERS Safety Report 5321683-8 (Version None)
Quarter: 2007Q2

REPORT INFORMATION
  Report Type: 
  Country: None (occurrence: None)
  Receive Date: 20070510
  Receipt Date: 20070503
  Transmission Date: 20071010
  Serious: Yes (Other)
  Sender: FDA-Public Use
  Company Number: US-ASTRAZENECA-2007UW00230

PATIENT
  Age: 59 Year
  Sex: Male
  Weight: 78.9 kg

DRUGS (5)
  1. RHINOCORT [Suspect]
     Indication: SINUS DISORDER
     Route: 045
  2. ALEVE [Suspect]
     Indication: MYALGIA
     Route: 048
     Dates: start: 20070103
  3. CLARINEX [Suspect]
  4. ACCURETIC [Suspect]
  5. MULTI-VITAMIN [Concomitant]

REACTIONS (11)
  - ABNORMAL SLEEP-RELATED EVENT [None]
  - BURNING SENSATION [None]
  - EXPIRED DRUG ADMINISTERED [None]
  - FAECES HARD [None]
  - HEADACHE [None]
  - HYPOTENSION [None]
  - MYALGIA [None]
  - PALPITATIONS [None]
  - PRURITUS [None]
  - SYNCOPE [None]
  - VERTIGO [None]
